FAERS Safety Report 9727986 (Version 3)
Quarter: 2015Q1

REPORT INFORMATION
  Report Type: Spontaneous
  Country: TR (occurrence: TR)
  Receive Date: 20131204
  Receipt Date: 20150311
  Transmission Date: 20150721
  Serious: Yes (Other)
  Sender: FDA-Public Use
  Company Number: TR-AMGEN-TURSP2012079643

PATIENT
  Age: 38 Year
  Sex: Male

DRUGS (3)
  1. VOLTAREN [Concomitant]
     Active Substance: DICLOFENAC SODIUM
     Indication: ANKYLOSING SPONDYLITIS
     Dosage: UNK, TWO TIMES A DAY
     Route: 048
  2. ENBREL [Suspect]
     Active Substance: ETANERCEPT
     Indication: ANKYLOSING SPONDYLITIS
     Dosage: 50 MG, WEEKLY
     Route: 058
     Dates: start: 20121128, end: 201404
  3. METHOTREXATE SODIUM. [Concomitant]
     Active Substance: METHOTREXATE SODIUM
     Indication: ANKYLOSING SPONDYLITIS
     Dosage: UNK, 3 TABLET IN TWICE A WEEK
     Route: 048
     Dates: start: 200912

REACTIONS (4)
  - Fall [Recovered/Resolved]
  - Foot fracture [Recovering/Resolving]
  - Blood glucose increased [Unknown]
  - Feeling abnormal [Not Recovered/Not Resolved]

NARRATIVE: CASE EVENT DATE: 20121128
